FAERS Safety Report 4877816-0 (Version None)
Quarter: 2006Q1

REPORT INFORMATION
  Report Type: 
  Country: None (occurrence: None)
  Receive Date: 20060109
  Receipt Date: 20051227
  Transmission Date: 20060701
  Serious: Yes (Hospitalization, Other)
  Sender: FDA-Public Use
  Company Number: US-2005-023983

PATIENT
  Age: 57 Year
  Sex: Female

DRUGS (14)
  1. BETASERON [Suspect]
     Indication: MULTIPLE SCLEROSIS
     Dosage: 8 MIU, EVERY 2D, SUBCUTANEOUS
     Route: 058
     Dates: start: 20030720, end: 20050103
  2. BETASERON [Suspect]
     Indication: MULTIPLE SCLEROSIS
     Dosage: 8 MIU, EVERY 2D, SUBCUTANEOUS
     Route: 058
     Dates: start: 20050128
  3. ALTENOLOL [Concomitant]
  4. LEXAPRO [Concomitant]
  5. ASPIRIN [Concomitant]
  6. PREVACID [Concomitant]
  7. MOBIC [Concomitant]
  8. VITAMIN E [Concomitant]
  9. ASCORBIC ACID [Concomitant]
  10. CALCIUM (CALCIUM) [Concomitant]
  11. POTASSIUM CHLORIDE [Concomitant]
  12. CLONAZEPAM [Concomitant]
  13. NITROTAB [Concomitant]
  14. MORPHINE SULFATE [Concomitant]

REACTIONS (7)
  - BREAST CANCER [None]
  - COORDINATION ABNORMAL [None]
  - DEPRESSION [None]
  - DYSARTHRIA [None]
  - FACTITIOUS DISORDER [None]
  - SENSORY DISTURBANCE [None]
  - SOMATOFORM DISORDER [None]
